FAERS Safety Report 26218428 (Version 1)
Quarter: 2025Q4

REPORT INFORMATION
  Report Type: Spontaneous
  Country: US (occurrence: US)
  Receive Date: 20251231
  Receipt Date: 20251231
  Transmission Date: 20260118
  Serious: Yes (Death, Life-Threatening, Hospitalization)
  Sender: DR REDDYS
  Company Number: US-MLMSERVICE-20251215-PI752289-00057-1

PATIENT
  Age: 75 Year
  Sex: Male

DRUGS (1)
  1. ATORVASTATIN [Suspect]
     Active Substance: ATORVASTATIN
     Indication: Product used for unknown indication
     Route: 065

REACTIONS (6)
  - Necrotising myositis [Fatal]
  - Acute kidney injury [Unknown]
  - Coagulopathy [Unknown]
  - Pharyngeal haemorrhage [Unknown]
  - Aspiration [Unknown]
  - Hypoxia [Unknown]
